FAERS Safety Report 7637567-6 (Version None)
Quarter: 2011Q3

REPORT INFORMATION
  Report Type: 
  Country: None (occurrence: None)
  Receive Date: 20110726
  Receipt Date: 20110720
  Transmission Date: 20111222
  Serious: No
  Sender: FDA-Public Use
  Company Number: US-PFIZER INC-2011165143

PATIENT
  Sex: Female
  Weight: 63.492 kg

DRUGS (1)
  1. PRISTIQ [Suspect]
     Indication: DEPRESSION
     Dosage: UNK
     Route: 048
     Dates: start: 20100801, end: 20110612

REACTIONS (6)
  - DRUG WITHDRAWAL SYNDROME [None]
  - DIZZINESS [None]
  - IRRITABILITY [None]
  - PERSONALITY CHANGE [None]
  - DEPRESSED MOOD [None]
  - ABNORMAL BEHAVIOUR [None]
